FAERS Safety Report 15003943 (Version 1)
Quarter: 2020Q3

REPORT INFORMATION
  Report Type: Spontaneous
  Country: AU (occurrence: AU)
  Receive Date: 20180613
  Receipt Date: 20180613
  Transmission Date: 20201104
  Serious: Yes (Hospitalization)
  Sender: FDA-Public Use
  Company Number: AU-ROCHE-2135139

PATIENT
  Sex: Female

DRUGS (3)
  1. LORLATINIB [Concomitant]
     Active Substance: LORLATINIB
     Indication: NON-SMALL CELL LUNG CANCER
     Route: 048
  2. KEPPRA [Suspect]
     Active Substance: LEVETIRACETAM
     Indication: NON-SMALL CELL LUNG CANCER
     Route: 065
  3. ALECTINIB. [Suspect]
     Active Substance: ALECTINIB
     Indication: NON-SMALL CELL LUNG CANCER
     Route: 065
     Dates: start: 201803

REACTIONS (2)
  - Drug intolerance [Unknown]
  - Toxic epidermal necrolysis [Unknown]
